FAERS Safety Report 19389420 (Version 1)
Quarter: 2021Q2

REPORT INFORMATION
  Report Type: Spontaneous
  Country: US (occurrence: US)
  Receive Date: 20210607
  Receipt Date: 20210607
  Transmission Date: 20210717
  Serious: No
  Sender: FDA-Public Use
  Company Number: None

PATIENT
  Age: 17 Year
  Sex: Male
  Weight: 110 kg

DRUGS (4)
  1. EPINEPHRINE INJECTION 0.3MG [Concomitant]
     Dates: start: 20210521, end: 20210521
  2. DARATUMUMAB [Suspect]
     Active Substance: DARATUMUMAB
     Dosage: ?          OTHER FREQUENCY:ONCE;?
     Route: 041
     Dates: start: 20210521, end: 20210521
  3. FAMOTIDINE 0.4MG/ML 20MG [Concomitant]
     Dates: start: 20210521, end: 20210521
  4. DIPHENHYDRAMINE 50MG/ML [Concomitant]
     Active Substance: DIPHENHYDRAMINE
     Dates: start: 20210521, end: 20210521

REACTIONS (1)
  - Anaphylactic reaction [None]

NARRATIVE: CASE EVENT DATE: 20210521
